FAERS Safety Report 20124807 (Version 1)
Quarter: 2021Q4

REPORT INFORMATION
  Report Type: Spontaneous
  Country: US (occurrence: None)
  Receive Date: 20211126
  Receipt Date: 20211126
  Transmission Date: 20220303
  Serious: Yes (Death)
  Sender: FDA-Public Use
  Company Number: None

PATIENT
  Age: 59 Year
  Sex: Male

DRUGS (1)
  1. VELTASSA [Suspect]
     Active Substance: PATIROMER
     Indication: Hyperkalaemia
     Dosage: OTHER FREQUENCY : 1 PACKET 4 TIMES WEEKLY;?
     Route: 048
     Dates: start: 20200423

REACTIONS (1)
  - Death [None]

NARRATIVE: CASE EVENT DATE: 20211028
